FAERS Safety Report 6776204-X (Version None)
Quarter: 2010Q2

REPORT INFORMATION
  Report Type: 
  Country: None (occurrence: None)
  Receive Date: 20100615
  Receipt Date: 20100601
  Transmission Date: 20101027
  Serious: Yes (Other)
  Sender: FDA-Public Use
  Company Number: 2010PL000064

PATIENT
  Age: 23 Year
  Sex: Female
  Weight: 44.9061 kg

DRUGS (6)
  1. LOTRONEX [Suspect]
     Indication: ABDOMINAL PAIN
     Dosage: 0.5 MG;QD;PO
     Route: 048
  2. LOTRONEX [Suspect]
     Indication: DIARRHOEA
     Dosage: 0.5 MG;QD;PO
     Route: 048
  3. LOTRONEX [Suspect]
     Indication: IRRITABLE BOWEL SYNDROME
     Dosage: 0.5 MG;QD;PO
     Route: 048
  4. DESLORATADINE [Concomitant]
  5. MICROGESTIN FE [Concomitant]
  6. TOPAMAX [Concomitant]

REACTIONS (1)
  - COLITIS ISCHAEMIC [None]
